FAERS Safety Report 10056355 (Version 3)
Quarter: 2014Q2

REPORT INFORMATION
  Report Type: Report from Study
  Country: AU (occurrence: AU)
  Receive Date: 20140403
  Receipt Date: 20140421
  Transmission Date: 20141212
  Serious: Yes (Hospitalization)
  Sender: FDA-Public Use
  Company Number: PHHY2014AU038431

PATIENT
  Sex: Male

DRUGS (2)
  1. CLOZARIL [Suspect]
     Dosage: 50 MG
     Dates: start: 20090401, end: 20140319
  2. CLOZARIL [Suspect]
     Dosage: UNK
     Dates: start: 20140325

REACTIONS (1)
  - Affective disorder [Unknown]
